FAERS Safety Report 9126662 (Version 5)
Quarter: 2013Q2

REPORT INFORMATION
  Report Type: Report from Study
  Country: JP (occurrence: JP)
  Receive Date: 20130228
  Receipt Date: 20130424
  Transmission Date: 20140414
  Serious: Yes (Other)
  Sender: FDA-Public Use
  Company Number: JP-JNJFOC-20130210361

PATIENT
  Age: 30 Year
  Sex: Male
  Weight: 75 kg

DRUGS (24)
  1. INVEGA [Suspect]
     Indication: SCHIZOPHRENIA, UNDIFFERENTIATED TYPE
     Route: 048
     Dates: start: 20111216, end: 20111222
  2. INVEGA [Suspect]
     Indication: SCHIZOPHRENIA, UNDIFFERENTIATED TYPE
     Route: 048
     Dates: start: 20111223, end: 20111229
  3. INVEGA [Suspect]
     Indication: SCHIZOPHRENIA, UNDIFFERENTIATED TYPE
     Route: 048
     Dates: start: 20111230, end: 20120105
  4. INVEGA [Suspect]
     Indication: SCHIZOPHRENIA, UNDIFFERENTIATED TYPE
     Route: 048
     Dates: start: 20120106, end: 20120112
  5. INVEGA [Suspect]
     Indication: SCHIZOPHRENIA, UNDIFFERENTIATED TYPE
     Route: 048
     Dates: start: 20120113, end: 20120209
  6. INVEGA [Suspect]
     Indication: SCHIZOPHRENIA, UNDIFFERENTIATED TYPE
     Route: 048
     Dates: start: 20120210, end: 20120308
  7. INVEGA [Suspect]
     Indication: SCHIZOPHRENIA, UNDIFFERENTIATED TYPE
     Route: 048
     Dates: start: 20120309, end: 20120322
  8. INVEGA [Suspect]
     Indication: SCHIZOPHRENIA, UNDIFFERENTIATED TYPE
     Route: 048
     Dates: start: 20120323
  9. NAUZELIN [Concomitant]
     Indication: VOMITING PSYCHOGENIC
     Route: 048
     Dates: end: 20121231
  10. ROHYPNOL [Concomitant]
     Indication: SCHIZOPHRENIA, UNDIFFERENTIATED TYPE
     Route: 048
  11. ROHYPNOL [Concomitant]
     Indication: SCHIZOPHRENIA, UNDIFFERENTIATED TYPE
     Route: 048
     Dates: end: 20111221
  12. SERENACE [Concomitant]
     Indication: SCHIZOPHRENIA, UNDIFFERENTIATED TYPE
     Route: 048
     Dates: start: 20111230, end: 20120105
  13. SERENACE [Concomitant]
     Indication: SCHIZOPHRENIA, UNDIFFERENTIATED TYPE
     Route: 048
     Dates: end: 20111221
  14. SERENACE [Concomitant]
     Indication: SCHIZOPHRENIA, UNDIFFERENTIATED TYPE
     Route: 048
     Dates: start: 20111222, end: 20111222
  15. SERENACE [Concomitant]
     Indication: SCHIZOPHRENIA, UNDIFFERENTIATED TYPE
     Route: 048
     Dates: start: 20111223, end: 20111228
  16. SERENACE [Concomitant]
     Indication: SCHIZOPHRENIA, UNDIFFERENTIATED TYPE
     Route: 048
     Dates: start: 20111229, end: 20111229
  17. AKINETON [Concomitant]
     Indication: PARKINSONISM
     Route: 048
  18. SEPAZON [Concomitant]
     Indication: SCHIZOPHRENIA, UNDIFFERENTIATED TYPE
     Route: 048
     Dates: start: 20120322, end: 20120325
  19. ZYRTEC [Concomitant]
     Indication: RHINITIS ALLERGIC
     Route: 048
     Dates: start: 20120322, end: 20120801
  20. ABILIFY [Concomitant]
     Indication: SCHIZOPHRENIA, UNDIFFERENTIATED TYPE
     Route: 048
     Dates: start: 20120210, end: 20120308
  21. ABILIFY [Concomitant]
     Indication: SCHIZOPHRENIA, UNDIFFERENTIATED TYPE
     Route: 048
     Dates: start: 20120427, end: 20120510
  22. ABILIFY [Concomitant]
     Indication: SCHIZOPHRENIA, UNDIFFERENTIATED TYPE
     Route: 048
     Dates: start: 20120511
  23. ABILIFY [Concomitant]
     Indication: SCHIZOPHRENIA, UNDIFFERENTIATED TYPE
     Route: 048
     Dates: start: 20110208, end: 20121209
  24. ZETIA [Concomitant]
     Indication: HYPERLIPIDAEMIA
     Route: 048
     Dates: start: 20121115

REACTIONS (4)
  - Liver disorder [Not Recovered/Not Resolved]
  - Bulimia nervosa [Recovered/Resolved]
  - Weight increased [Not Recovered/Not Resolved]
  - Hypertriglyceridaemia [Recovering/Resolving]
